FAERS Safety Report 5534564-1 (Version None)
Quarter: 2007Q4

REPORT INFORMATION
  Report Type: 
  Country: None (occurrence: None)
  Receive Date: 20071204
  Receipt Date: 20071204
  Transmission Date: 20080405
  Serious: No
  Sender: FDA-Public Use
  Company Number: None

PATIENT
  Age: 63 Year
  Sex: Male

DRUGS (1)
  1. LEVAQUIN [Suspect]
     Indication: PNEUMONIA
     Dosage: 750MG  ONE  IV DRIP
     Route: 041
     Dates: start: 20071101, end: 20071203

REACTIONS (1)
  - INJECTION SITE ERYTHEMA [None]
